FAERS Safety Report 4965565-X (Version None)
Quarter: 2006Q1

REPORT INFORMATION
  Report Type: 
  Country: None (occurrence: None)
  Receive Date: 20060201
  Receipt Date: 20051018
  Transmission Date: 20060701
  Serious: No
  Sender: FDA-Public Use
  Company Number: 2005PV003407

PATIENT
  Age: 59 Year
  Sex: Female

DRUGS (9)
  1. BYETTA [Suspect]
     Indication: DIABETES MELLITUS NON-INSULIN-DEPENDENT
     Dosage: 10 MCG; BID; SC
     Route: 058
     Dates: start: 20050918, end: 20051018
  2. GLUCOPHAGE [Concomitant]
  3. AMARYL [Concomitant]
  4. VERAPAMIL [Concomitant]
  5. LIPITOR [Concomitant]
  6. NETFORMIN [Concomitant]
  7. VITAMIN E [Concomitant]
  8. ENALAPRIL MALEATE [Concomitant]
  9. ASPIRIN [Concomitant]

REACTIONS (1)
  - URTICARIA [None]
